FAERS Safety Report 10292018 (Version 1)
Quarter: 2014Q3

REPORT INFORMATION
  Report Type: Spontaneous
  Country: JP (occurrence: JP)
  Receive Date: 20140710
  Receipt Date: 20140710
  Transmission Date: 20150326
  Serious: Yes (Life-Threatening)
  Sender: FDA-Public Use
  Company Number: JP-ASTRAZENECA-2014SE49311

PATIENT
  Age: 77 Year
  Sex: Male

DRUGS (17)
  1. MEROPEN [Suspect]
     Active Substance: MEROPENEM
     Indication: INFECTION
     Route: 042
     Dates: start: 20140405, end: 20140405
  2. OMEPRAL [Concomitant]
     Active Substance: OMEPRAZOLE
  3. MAGMITT [Concomitant]
     Active Substance: MAGNESIUM OXIDE
  4. POLAPREZINC OD [Concomitant]
  5. PHYSIO 35 [Concomitant]
     Active Substance: ELECTROLYTES NOS
  6. FUROSEMIDE. [Concomitant]
     Active Substance: FUROSEMIDE
  7. NEXIUM [Concomitant]
     Active Substance: ESOMEPRAZOLE MAGNESIUM
  8. NYROZIN [Concomitant]
  9. BFLUID [Concomitant]
     Active Substance: AMINO ACIDS\DEXTROSE\ELECTROLYTES NOS\VITAMINS
  10. TAMSULOSIN HYDROCHLORIDE OD [Concomitant]
  11. MEROPEN [Suspect]
     Active Substance: MEROPENEM
     Indication: INFECTION
     Route: 042
     Dates: start: 20140329, end: 20140329
  12. VEEN-D [Concomitant]
     Active Substance: DEXTROSE
  13. BIOFERMIN R [Concomitant]
     Active Substance: BACILLUS SUBTILIS\LACTOBACILLUS ACIDOPHILUS\STREPTOCOCCUS FAECAIS
     Route: 048
  14. MEROPEN [Suspect]
     Active Substance: MEROPENEM
     Indication: INFECTION
     Route: 042
     Dates: start: 20140330, end: 20140330
  15. CRAVIT [Suspect]
     Active Substance: LEVOFLOXACIN
     Route: 041
     Dates: start: 20140411, end: 20140412
  16. FAMOTIDINE. [Concomitant]
     Active Substance: FAMOTIDINE
  17. AVOLVE [Concomitant]
     Active Substance: DUTASTERIDE

REACTIONS (1)
  - Acute generalised exanthematous pustulosis [Recovered/Resolved]

NARRATIVE: CASE EVENT DATE: 20140409
